FAERS Safety Report 4762050-5 (Version None)
Quarter: 2005Q3

REPORT INFORMATION
  Report Type: 
  Country: None (occurrence: None)
  Receive Date: 20050831
  Receipt Date: 20050715
  Transmission Date: 20060218
  Serious: No
  Sender: FDA-Public Use
  Company Number: PHEH2005US07993

PATIENT
  Age: 76 Year
  Sex: 0

DRUGS (6)
  1. ENABLEX [Suspect]
     Indication: HYPERTONIC BLADDER
     Dosage: 7.5 MG, QD,
     Dates: start: 20050518, end: 20050715
  2. FLOMAX [Concomitant]
  3. PRAVACHOL [Concomitant]
  4. AMBIEN [Concomitant]
  5. CELEXA [Concomitant]
  6. NORVASC [Concomitant]

REACTIONS (1)
  - HEADACHE [None]
